FAERS Safety Report 15580337 (Version 1)
Quarter: 2018Q4

REPORT INFORMATION
  Report Type: Report from Study
  Country: US (occurrence: US)
  Receive Date: 20181102
  Receipt Date: 20181102
  Transmission Date: 20190205
  Serious: Yes (Hospitalization)
  Sender: FDA-Public Use
  Company Number: PHEH2018US045932

PATIENT
  Sex: Male

DRUGS (2)
  1. ENTRESTO [Suspect]
     Active Substance: SACUBITRIL\VALSARTAN
     Dosage: 50 MG, (SACUBITRIL 24MG/VALSARTAN 26MG) BID
     Route: 048
  2. ENTRESTO [Suspect]
     Active Substance: SACUBITRIL\VALSARTAN
     Indication: PRODUCT USED FOR UNKNOWN INDICATION
     Dosage: 100MG, (SACUBITRIL 49MG/VALSARTAN 51MG) BID
     Route: 048

REACTIONS (3)
  - Renal disorder [Unknown]
  - Dehydration [Unknown]
  - Blood pressure decreased [Recovering/Resolving]
